FAERS Safety Report 14712849 (Version 1)
Quarter: 2018Q2

REPORT INFORMATION
  Report Type: Spontaneous
  Country: FR (occurrence: FR)
  Receive Date: 20180404
  Receipt Date: 20180404
  Transmission Date: 20180711
  Serious: Yes (Other)
  Sender: FDA-Public Use
  Company Number: FR-MERCK KGAA-2045070

PATIENT
  Age: 59 Year
  Sex: Female

DRUGS (1)
  1. NOVOTHYROX [Suspect]
     Active Substance: LEVOTHYROXINE SODIUM
     Indication: PRODUCT USED FOR UNKNOWN INDICATION

REACTIONS (41)
  - Plicated tongue [Not Recovered/Not Resolved]
  - Abdominal pain [None]
  - Oral discomfort [None]
  - Muscle spasms [None]
  - Rash [None]
  - Stress [None]
  - Depression [None]
  - Mastication disorder [None]
  - Temperature intolerance [None]
  - Blood phosphorus increased [None]
  - Vitamin D decreased [None]
  - Swelling [None]
  - Obstructive airways disorder [None]
  - Noninfective gingivitis [None]
  - Nasal discomfort [Not Recovered/Not Resolved]
  - Euphoric mood [None]
  - Dizziness [None]
  - Blood cholesterol increased [None]
  - Dyspnoea [None]
  - Tendonitis [None]
  - Skin plaque [None]
  - Depressed mood [None]
  - Diarrhoea [None]
  - Decreased appetite [None]
  - Gallbladder cancer [None]
  - Fatigue [None]
  - Burning mouth syndrome [None]
  - Tongue dry [None]
  - Asthenia [None]
  - High density lipoprotein increased [None]
  - Alopecia [None]
  - Insomnia [None]
  - Productive cough [None]
  - Pain in extremity [None]
  - Pyrexia [None]
  - Blood uric acid decreased [None]
  - Blood calcium increased [None]
  - Low density lipoprotein increased [None]
  - Tachycardia [None]
  - Increased viscosity of upper respiratory secretion [None]
  - Loss of personal independence in daily activities [None]

NARRATIVE: CASE EVENT DATE: 20170315
